FAERS Safety Report 12155295 (Version 1)
Quarter: 2016Q1

REPORT INFORMATION
  Report Type: Spontaneous
  Country: US (occurrence: US)
  Receive Date: 20160307
  Receipt Date: 20160307
  Transmission Date: 20160526
  Serious: Yes (Other)
  Sender: FDA-Public Use
  Company Number: US-AMGEN-USASP2016004585

PATIENT
  Sex: Male

DRUGS (2)
  1. BLINCYTO [Suspect]
     Active Substance: BLINATUMOMAB
     Indication: ACUTE LYMPHOCYTIC LEUKAEMIA
     Dosage: 28 MUG, UNK
     Route: 065
  2. INSULIN [Concomitant]
     Active Substance: INSULIN NOS
     Indication: DIABETES MELLITUS

REACTIONS (3)
  - Neurotoxicity [Not Recovered/Not Resolved]
  - Blood glucose increased [Unknown]
  - Wrong technique in product usage process [Unknown]
